FAERS Safety Report 4817332-5 (Version None)
Quarter: 2005Q3

REPORT INFORMATION
  Report Type: 
  Country: None (occurrence: None)
  Receive Date: 20050929
  Receipt Date: 20050616
  Transmission Date: 20060218
  Serious: No
  Sender: FDA-Public Use
  Company Number: 05P-163-0292358-00

PATIENT
  Age: 43 Year
  Sex: Female
  Weight: 76.2043 kg

DRUGS (8)
  1. HUMIRA [Suspect]
     Indication: RHEUMATOID ARTHRITIS
     Dosage: 40 MG, 1 IN 2 WK, SUBCUTANEOUS
     Route: 058
     Dates: start: 20030701, end: 20040901
  2. PREDNISONE [Concomitant]
  3. LEFLUNOMIDE [Concomitant]
  4. PILOCARPINE HYDROCHLORIDE [Concomitant]
  5. HYDROXYCHLOROQUINE PHOSPHATE [Concomitant]
  6. SULFASALAZINE [Concomitant]
  7. CITALOPRAM HYDROBROMIDE [Concomitant]
  8. IBUPROFEN [Concomitant]

REACTIONS (2)
  - BALANCE DISORDER [None]
  - MULTIPLE SCLEROSIS [None]
